FAERS Safety Report 7245304-2 (Version None)
Quarter: 2011Q1

REPORT INFORMATION
  Report Type: 
  Country: None (occurrence: None)
  Receive Date: 20110126
  Receipt Date: 20110111
  Transmission Date: 20110831
  Serious: Yes (Hospitalization)
  Sender: FDA-Public Use
  Company Number: DE-PFIZER INC-2009291612

PATIENT
  Sex: Male
  Weight: 80 kg

DRUGS (3)
  1. TAVOR [Suspect]
     Dosage: 3 MG, SINGLE
     Route: 048
     Dates: start: 20090918, end: 20090918
  2. TREVILOR - SLOW RELEASE [Suspect]
     Dosage: 1500 MG, SINGLE
     Route: 048
     Dates: start: 20090918, end: 20090918
  3. DOXEPIN HCL [Suspect]
     Dosage: 1500 MG, SINGLE
     Route: 048
     Dates: start: 20090918, end: 20090918

REACTIONS (3)
  - SUICIDE ATTEMPT [None]
  - COMA [None]
  - INTENTIONAL OVERDOSE [None]
